FAERS Safety Report 12273975 (Version 1)
Quarter: 2016Q2

REPORT INFORMATION
  Report Type: Spontaneous
  Country: US (occurrence: US)
  Receive Date: 20160415
  Receipt Date: 20160415
  Transmission Date: 20160815
  Serious: No
  Sender: FDA-Public Use
  Company Number: US-ALLERGAN-1515866US

PATIENT
  Sex: Female
  Weight: 74.84 kg

DRUGS (5)
  1. SINGULAIR [Concomitant]
     Active Substance: MONTELUKAST SODIUM
     Indication: HYPERSENSITIVITY
     Dosage: UNK
  2. TIZANIDINE. [Concomitant]
     Active Substance: TIZANIDINE
     Indication: FACIAL PAIN
     Dosage: 1 MONTH AGO
     Route: 048
  3. LATISSE [Suspect]
     Active Substance: BIMATOPROST
     Indication: GROWTH OF EYELASHES
     Dosage: 2 GTT, QPM
     Route: 061
  4. AZELASTINE [Concomitant]
     Active Substance: AZELASTINE
     Indication: HYPERSENSITIVITY
     Dosage: UNK
     Route: 045
  5. PROZAC [Concomitant]
     Active Substance: FLUOXETINE HYDROCHLORIDE
     Dosage: UNK
     Route: 048

REACTIONS (9)
  - Erythema [Recovered/Resolved]
  - Ocular discomfort [Recovered/Resolved]
  - Hypoaesthesia eye [Recovered/Resolved]
  - Eye irritation [Recovered/Resolved]
  - Incorrect dose administered [Unknown]
  - Ocular hyperaemia [Recovered/Resolved]
  - Eye pruritus [Recovered/Resolved]
  - Drug dose omission [Unknown]
  - Eye swelling [Recovered/Resolved]
